FAERS Safety Report 8070613-7 (Version None)
Quarter: 2012Q1

REPORT INFORMATION
  Report Type: 
  Country: None (occurrence: None)
  Receive Date: 20120125
  Receipt Date: 20120116
  Transmission Date: 20120608
  Serious: Yes (Hospitalization, Other)
  Sender: FDA-Public Use
  Company Number: PHHY2011AU74758

PATIENT
  Sex: Male

DRUGS (3)
  1. CLOZARIL [Suspect]
     Route: 048
     Dates: start: 20111228
  2. CLOZARIL [Suspect]
     Dosage: 175 MG, UNK
     Route: 048
     Dates: start: 20120116
  3. CLOZARIL [Suspect]
     Indication: SCHIZOPHRENIA
     Dosage: 500 MG
     Route: 048
     Dates: start: 20100401, end: 20100826

REACTIONS (28)
  - ANISOCYTOSIS [None]
  - WHITE BLOOD CELL COUNT INCREASED [None]
  - MENTAL IMPAIRMENT [None]
  - LYMPHOCYTOSIS [None]
  - MONOCYTE COUNT INCREASED [None]
  - GAMMA-GLUTAMYLTRANSFERASE INCREASED [None]
  - INSOMNIA [None]
  - LEUKOCYTOSIS [None]
  - CYST [None]
  - HYPOPHAGIA [None]
  - CHEST PAIN [None]
  - NEUTROPHILIA [None]
  - ARTERIOSCLEROSIS [None]
  - MENISCUS LESION [None]
  - MOOD SWINGS [None]
  - MYOCARDITIS [None]
  - THROMBOCYTOSIS [None]
  - RED CELL DISTRIBUTION WIDTH INCREASED [None]
  - TROPONIN INCREASED [None]
  - ELECTROCARDIOGRAM QT PROLONGED [None]
  - BLOOD ALKALINE PHOSPHATASE INCREASED [None]
  - EOSINOPHIL COUNT INCREASED [None]
  - AGGRESSION [None]
  - TACHYCARDIA [None]
  - DYSPNOEA [None]
  - PSYCHOTIC DISORDER [None]
  - ALANINE AMINOTRANSFERASE INCREASED [None]
  - DYSSTASIA [None]
